FAERS Safety Report 6999030-5 (Version None)
Quarter: 2010Q3

REPORT INFORMATION
  Report Type: 
  Country: None (occurrence: None)
  Receive Date: 20100920
  Receipt Date: 20100915
  Transmission Date: 20110219
  Serious: Yes (Hospitalization, Other)
  Sender: FDA-Public Use
  Company Number: US-ASTRAZENECA-2007UW12084

PATIENT
  Age: 45 Year
  Sex: Female
  Weight: 70.3 kg

DRUGS (29)
  1. SEROQUEL [Suspect]
     Indication: DEPRESSION
     Route: 048
     Dates: start: 20010101
  2. SEROQUEL [Suspect]
     Indication: ANXIETY
     Route: 048
     Dates: start: 20010101
  3. SEROQUEL [Suspect]
     Dosage: 25-300MG
     Route: 048
     Dates: start: 20020116
  4. SEROQUEL [Suspect]
     Dosage: 25-300MG
     Route: 048
     Dates: start: 20020116
  5. PREVACID [Concomitant]
  6. PAXIL [Concomitant]
     Dates: start: 20010101
  7. EFFEXOR [Concomitant]
     Dosage: 75-225 MG
     Dates: start: 20010101, end: 20020101
  8. PREMARIN [Concomitant]
  9. CLONAZEPAM [Concomitant]
  10. SYNTHROID [Concomitant]
  11. AMITRIPTYLINE HCL [Concomitant]
  12. OXYBUTYNIN [Concomitant]
  13. QUINAPRIL [Concomitant]
  14. HYDROCODONE [Concomitant]
  15. GLUCOPHAGE [Concomitant]
  16. ZOLOFT [Concomitant]
     Dates: start: 20010101
  17. BEXTRA [Concomitant]
  18. AMBIEN [Concomitant]
     Indication: INSOMNIA
     Dates: start: 20000101
  19. AMBIEN [Concomitant]
     Dosage: 5-10 MG
     Dates: start: 20010101, end: 20030101
  20. CARBIDOPA [Concomitant]
  21. FUROSEMIDE [Concomitant]
  22. CYCLOBENZAPRINE [Concomitant]
  23. SIMVASTATIN [Concomitant]
  24. ACTOS [Concomitant]
  25. AMARYL [Concomitant]
  26. LISINOPRIL [Concomitant]
  27. LANTUS [Concomitant]
  28. PHENTERMINE [Concomitant]
     Indication: WEIGHT CONTROL
  29. DIAZEPAM [Concomitant]
     Dates: start: 20030101

REACTIONS (8)
  - BLOOD CHOLESTEROL INCREASED [None]
  - DIABETES MELLITUS INADEQUATE CONTROL [None]
  - HYPERLIPIDAEMIA [None]
  - LIMB INJURY [None]
  - OBESITY [None]
  - PNEUMONIA [None]
  - RESPIRATORY FAILURE [None]
  - TYPE 2 DIABETES MELLITUS [None]
